FAERS Safety Report 6046516-6 (Version None)
Quarter: 2009Q1

REPORT INFORMATION
  Report Type: 
  Country: None (occurrence: None)
  Receive Date: 20090122
  Receipt Date: 20090115
  Transmission Date: 20090719
  Serious: Yes (Death)
  Sender: FDA-Public Use
  Company Number: US-BAYER-200838268NA

PATIENT
  Age: 66 Year
  Sex: Male

DRUGS (3)
  1. NEXAVAR [Suspect]
     Indication: HEPATIC NEOPLASM MALIGNANT
     Dosage: TOTAL DAILY DOSE: 800 MG  UNIT DOSE: 200 MG
     Route: 048
     Dates: start: 20080701, end: 20081111
  2. DEXAMETHASONE [Concomitant]
     Dosage: TOTAL DAILY DOSE: 4 MG
     Dates: start: 20081030
  3. METHADONE HCL [Concomitant]
     Dates: start: 20080919

REACTIONS (2)
  - ALPHA 1 FOETOPROTEIN ABNORMAL [None]
  - HEPATIC NEOPLASM MALIGNANT [None]
